FAERS Safety Report 10844072 (Version 1)
Quarter: 2015Q1

REPORT INFORMATION
  Report Type: Spontaneous
  Country: US (occurrence: US)
  Receive Date: 20150220
  Receipt Date: 20150220
  Transmission Date: 20150721
  Serious: Yes (Life-Threatening, Hospitalization)
  Sender: FDA-Public Use
  Company Number: US-SUN PHARMACEUTICAL INDUSTRIES LTD-2015SUN00457

PATIENT
  Age: 17 Year
  Sex: Male

DRUGS (4)
  1. OLANZAPINE 5 MG TABLETS [Suspect]
     Active Substance: OLANZAPINE
     Indication: AFFECTIVE DISORDER
     Dosage: 2.9 MG/KG, UNK
     Route: 048
  2. VALPROIC ACID. [Suspect]
     Active Substance: VALPROIC ACID
     Indication: AFFECTIVE DISORDER
     Dosage: 146 MG/KG, UNK
     Route: 048
  3. IMIPRAMINE HYDROCHLORIDE TABLETS, USP 10 MG [Suspect]
     Active Substance: IMIPRAMINE
     Indication: AFFECTIVE DISORDER
     Dosage: 1.9 MG/KG, UNK
     Route: 048
  4. GUANIFACINE [Suspect]
     Active Substance: GUANFACINE
     Indication: AFFECTIVE DISORDER
     Dosage: 0.39 MG/KG, UNK
     Route: 048

REACTIONS (6)
  - Brain oedema [Recovering/Resolving]
  - Hyperammonaemia [Recovering/Resolving]
  - Toxicity to various agents [Recovering/Resolving]
  - Overdose [Recovering/Resolving]
  - Intracranial pressure increased [Recovered/Resolved]
  - Pneumonia [Unknown]
